FAERS Safety Report 21461408 (Version 2)
Quarter: 2022Q4

REPORT INFORMATION
  Report Type: Report from Study
  Country: US (occurrence: US)
  Receive Date: 20221015
  Receipt Date: 20221021
  Transmission Date: 20230113
  Serious: Yes (Hospitalization)
  Sender: FDA-Public Use
  Company Number: US-ABBVIE-4154660

PATIENT
  Sex: Male

DRUGS (3)
  1. SKYRIZI [Suspect]
     Active Substance: RISANKIZUMAB-RZAA
     Indication: Psoriasis
     Dosage: FORM STRENGTH :150 MG
     Route: 058
     Dates: end: 20220608
  2. SKYRIZI [Suspect]
     Active Substance: RISANKIZUMAB-RZAA
     Dosage: WEEK 4; FORM STRENGTH; 150 MG
     Route: 058
     Dates: start: 20220315, end: 20220315
  3. SKYRIZI [Suspect]
     Active Substance: RISANKIZUMAB-RZAA
     Dosage: WEEK 0; FORM STRENGTH:150 MG
     Route: 058
     Dates: start: 20220214, end: 20220214

REACTIONS (5)
  - Cerebrovascular accident [Unknown]
  - Arterial occlusive disease [Recovered/Resolved]
  - Off label use [Unknown]
  - Thrombosis [Unknown]
  - Product use issue [Unknown]

NARRATIVE: CASE EVENT DATE: 20220101
